FAERS Safety Report 19224105 (Version 1)
Quarter: 2021Q2

REPORT INFORMATION
  Report Type: Spontaneous
  Country: US (occurrence: US)
  Receive Date: 20210505
  Receipt Date: 20210505
  Transmission Date: 20210717
  Serious: No
  Sender: FDA-Public Use
  Company Number: US-ROCHE-2575185

PATIENT
  Sex: Male
  Weight: 77.18 kg

DRUGS (11)
  1. VITAMIN D3 [Concomitant]
     Active Substance: CHOLECALCIFEROL
  2. METOPROLOL TARTRATE. [Concomitant]
     Active Substance: METOPROLOL TARTRATE
  3. FUROSEMIDE. [Concomitant]
     Active Substance: FUROSEMIDE
  4. ESBRIET [Suspect]
     Active Substance: PIRFENIDONE
     Indication: IDIOPATHIC PULMONARY FIBROSIS
     Route: 048
     Dates: start: 20200311
  5. CALCIUM [Concomitant]
     Active Substance: CALCIUM
  6. FORMOTEROL [Concomitant]
     Active Substance: FORMOTEROL
  7. ZINC. [Concomitant]
     Active Substance: ZINC
  8. BUDESONIDE. [Concomitant]
     Active Substance: BUDESONIDE
  9. MAGNESIUM [Concomitant]
     Active Substance: MAGNESIUM
  10. POTASSIUM CHLORIDE. [Concomitant]
     Active Substance: POTASSIUM CHLORIDE
  11. WARFARIN [Concomitant]
     Active Substance: WARFARIN

REACTIONS (4)
  - Muscular weakness [Unknown]
  - Tremor [Unknown]
  - Renal disorder [Not Recovered/Not Resolved]
  - Abdominal distension [Recovered/Resolved]
